FAERS Safety Report 21325616 (Version 1)
Quarter: 2022Q3

REPORT INFORMATION
  Report Type: Spontaneous
  Country: US (occurrence: None)
  Receive Date: 20220912
  Receipt Date: 20220912
  Transmission Date: 20221026
  Serious: No
  Sender: FDA-Public Use
  Company Number: None

PATIENT
  Age: 59 Year
  Sex: Male

DRUGS (1)
  1. KYNMOBI [Suspect]
     Active Substance: APOMORPHINE HYDROCHLORIDE
     Dosage: FREQUENCY : AS NEEDED;?
     Route: 060

REACTIONS (2)
  - Myalgia [None]
  - Muscle rigidity [None]

NARRATIVE: CASE EVENT DATE: 20220908
